FAERS Safety Report 4404216-X (Version None)
Quarter: 2004Q3

REPORT INFORMATION
  Report Type: 
  Country: None (occurrence: None)
  Receive Date: 20040719
  Receipt Date: 20040621
  Transmission Date: 20050211
  Serious: Yes (Hospitalization)
  Sender: FDA-Public Use
  Company Number: 6009375

PATIENT
  Age: 89 Year
  Sex: Male

DRUGS (5)
  1. BISOPROLOL (CHF) (TABLETS) (BISOPROLOL) [Suspect]
     Indication: CARDIAC FAILURE CONGESTIVE
     Dosage: 2,5 MG
     Route: 048
     Dates: start: 20040519
  2. ENALAPRIL MALEATE [Suspect]
     Indication: CARDIAC FAILURE CONGESTIVE
     Dosage: 20 MG
     Route: 048
     Dates: start: 20031111
  3. FUROSEMIDE [Concomitant]
  4. DIGOXIN [Concomitant]
  5. RANITIDINE [Concomitant]

REACTIONS (1)
  - PAIN IN EXTREMITY [None]
